FAERS Safety Report 19420150 (Version 1)
Quarter: 2021Q2

REPORT INFORMATION
  Report Type: Spontaneous
  Country: DE (occurrence: DE)
  Receive Date: 20210615
  Receipt Date: 20210615
  Transmission Date: 20210717
  Serious: Yes (Congenital Anomaly)
  Sender: FDA-Public Use
  Company Number: NVSC2021DE127829

PATIENT
  Sex: Female
  Weight: 3.36 kg

DRUGS (6)
  1. L?THYROXIN [Concomitant]
     Active Substance: LEVOTHYROXINE SODIUM
     Indication: FOETAL EXPOSURE DURING PREGNANCY
     Dosage: MATERNAL DOSE: 150 [?G/D (BIS 125), 0. ? 39. GESTATIONAL WEEK ]
     Route: 064
     Dates: start: 20191224, end: 20200922
  2. PAROXETINE. [Suspect]
     Active Substance: PAROXETINE
     Indication: FOETAL EXPOSURE DURING PREGNANCY
     Dosage: MATERNAL DOSE: 15 MG, QD (15 [MG/D (7.5?7.5?0) ] 2 SEPARATED DOSES, 0. ? 39. GESTATIONAL WEEK)
     Route: 064
     Dates: start: 20191224, end: 20200922
  3. SCHUSSLER SALZ NR. 7 [Concomitant]
     Indication: FOETAL EXPOSURE DURING PREGNANCY
     Dosage: MATERNAL DOSE: UNK (30.? 39. GESTATIONAL WEEK)
     Route: 064
  4. GAVISCON [Concomitant]
     Active Substance: ALUMINUM HYDROXIDE\MAGNESIUM CARBONATE
     Indication: FOETAL EXPOSURE DURING PREGNANCY
     Dosage: MATERNAL DOSE: UNK
     Route: 064
  5. METOPROLOL. [Concomitant]
     Active Substance: METOPROLOL
     Indication: FOETAL EXPOSURE DURING PREGNANCY
     Dosage: MATERNAL DOSE: UNK (16. ? 39. GESTATIONAL WEEK)
     Route: 064
  6. PRAMIPEXOLE. [Suspect]
     Active Substance: PRAMIPEXOLE
     Indication: FOETAL EXPOSURE DURING PREGNANCY
     Dosage: MATERNAL DOSE: 0.52 MG, QD (0.52 [MG/D (0?1?0) ], 0. ? 39. GESTATIONAL WEEK)
     Route: 064
     Dates: start: 20191224, end: 20200922

REACTIONS (2)
  - Foetal exposure during pregnancy [Unknown]
  - Ventricular septal defect [Unknown]
